FAERS Safety Report 7774552-8 (Version None)
Quarter: 2011Q3

REPORT INFORMATION
  Report Type: 
  Country: None (occurrence: None)
  Receive Date: 20110923
  Receipt Date: 20110923
  Transmission Date: 20111222
  Serious: Yes (Other)
  Sender: FDA-Public Use
  Company Number: GB-ROCHE-798428

PATIENT
  Sex: Male
  Weight: 85.9 kg

DRUGS (6)
  1. PEGASYS [Suspect]
     Indication: HEPATITIS C
     Route: 058
     Dates: start: 20110808
  2. COPEGUS [Suspect]
     Indication: HEPATITIS C
     Route: 048
     Dates: start: 20110808
  3. OMEPRAZOLE [Concomitant]
     Indication: GASTRIC DISORDER
     Route: 048
  4. DIAZEPAM [Concomitant]
     Indication: ANXIETY
     Route: 048
  5. METHADONE HCL [Concomitant]
     Indication: DRUG WITHDRAWAL MAINTENANCE THERAPY
     Route: 048
  6. TEGRETOL [Concomitant]
     Indication: EPILEPSY
     Route: 048

REACTIONS (1)
  - ALANINE AMINOTRANSFERASE INCREASED [None]
